FAERS Safety Report 24768697 (Version 1)
Quarter: 2024Q4

REPORT INFORMATION
  Report Type: Spontaneous
  Country: IN (occurrence: IN)
  Receive Date: 20241224
  Receipt Date: 20241224
  Transmission Date: 20250115
  Serious: Yes (Hospitalization)
  Sender: HETERO
  Company Number: IN-HETERO-HET2024IN04905

PATIENT
  Age: 78 Year
  Sex: Male
  Weight: 75 kg

DRUGS (6)
  1. IVABRADINE [Suspect]
     Active Substance: IVABRADINE
     Indication: Cardiac disorder
     Dosage: 5 MILLIGRAM, QD
     Route: 048
  2. TORSEMIDE [Suspect]
     Active Substance: TORSEMIDE
     Indication: Cardiac disorder
     Dosage: 1 DOSAGE FORM, QD
     Route: 048
  3. DEPLATT-A [Concomitant]
     Indication: Product used for unknown indication
     Dosage: UNK
     Route: 065
  4. ENOXAPARIN SODIUM [Concomitant]
     Active Substance: ENOXAPARIN SODIUM
     Indication: Product used for unknown indication
     Dosage: UNK
     Route: 065
  5. ATORVASTATIN CALCIUM [Concomitant]
     Active Substance: ATORVASTATIN CALCIUM
     Indication: Product used for unknown indication
     Dosage: UNK
     Route: 065
  6. ACETYLCYSTEINE [Concomitant]
     Active Substance: ACETYLCYSTEINE
     Indication: Product used for unknown indication
     Dosage: UNK
     Route: 065

REACTIONS (1)
  - Myocardial infarction [Not Recovered/Not Resolved]

NARRATIVE: CASE EVENT DATE: 20241206
